FAERS Safety Report 9053239 (Version 1)
Quarter: 2013Q1

REPORT INFORMATION
  Report Type: Spontaneous
  Country: US (occurrence: US)
  Receive Date: 20130208
  Receipt Date: 20130208
  Transmission Date: 20140127
  Serious: No
  Sender: FDA-Public Use
  Company Number: US-009507513-1302USA001856

PATIENT
  Age: 60 Year
  Sex: Male

DRUGS (1)
  1. ZIOPTAN [Suspect]
     Indication: GLAUCOMA
     Dosage: 1 DROP IN AFFECTED EYE, QD IN THE EVENING
     Route: 047
     Dates: start: 201207, end: 20130204

REACTIONS (4)
  - Eyelid margin crusting [Unknown]
  - Eye irritation [Unknown]
  - Eye pain [Unknown]
  - Overdose [Unknown]
